FAERS Safety Report 7109857-7 (Version None)
Quarter: 2010Q4

REPORT INFORMATION
  Report Type: 
  Country: None (occurrence: None)
  Receive Date: 20101118
  Receipt Date: 20101108
  Transmission Date: 20110411
  Serious: Yes (Hospitalization)
  Sender: FDA-Public Use
  Company Number: DE-JNJFOC-20101102434

PATIENT
  Age: 58 Year
  Sex: Male

DRUGS (24)
  1. RISPERDAL [Suspect]
     Indication: ILL-DEFINED DISORDER
     Route: 048
     Dates: start: 20091028, end: 20091104
  2. RISPERDAL [Suspect]
     Route: 048
     Dates: start: 20091028, end: 20091104
  3. RISPERDAL [Suspect]
     Route: 048
     Dates: start: 20091028, end: 20091104
  4. RISPERDAL [Suspect]
     Route: 048
     Dates: start: 20091028, end: 20091104
  5. RISPERDAL [Suspect]
     Route: 048
     Dates: start: 20091028, end: 20091104
  6. LEPONEX [Suspect]
     Indication: ILL-DEFINED DISORDER
     Route: 048
     Dates: start: 19950101
  7. LEPONEX [Suspect]
     Route: 048
     Dates: start: 19950101
  8. LEPONEX [Suspect]
     Route: 048
     Dates: start: 19950101
  9. LEPONEX [Suspect]
     Route: 048
     Dates: start: 19950101
  10. LEPONEX [Suspect]
     Route: 048
     Dates: start: 19950101
  11. LEPONEX [Suspect]
     Route: 048
     Dates: start: 19950101
  12. LEPONEX [Suspect]
     Route: 048
     Dates: start: 19950101
  13. MELNEURIN [Concomitant]
     Route: 048
     Dates: start: 20090829
  14. MELNEURIN [Concomitant]
     Route: 048
     Dates: start: 20090829
  15. MELNEURIN [Concomitant]
     Route: 048
     Dates: start: 20090829
  16. MELNEURIN [Concomitant]
     Route: 048
     Dates: start: 20090829
  17. MELNEURIN [Concomitant]
     Route: 048
     Dates: start: 20090829
  18. MELNEURIN [Concomitant]
     Route: 048
     Dates: start: 20090829
  19. TAVOR [Concomitant]
     Route: 048
     Dates: start: 20090828, end: 20091127
  20. TAVOR [Concomitant]
     Route: 048
     Dates: start: 20090828, end: 20091127
  21. TAVOR [Concomitant]
     Route: 048
     Dates: start: 20090828, end: 20091127
  22. TAVOR [Concomitant]
     Route: 048
     Dates: start: 20090828, end: 20091127
  23. TAVOR [Concomitant]
     Route: 048
     Dates: start: 20090828, end: 20091127
  24. TAVOR [Concomitant]
     Route: 048
     Dates: start: 20090828, end: 20091127

REACTIONS (7)
  - BLOOD CREATINE PHOSPHOKINASE INCREASED [None]
  - DELIRIUM [None]
  - DELUSION [None]
  - HALLUCINATION [None]
  - HYPONATRAEMIA [None]
  - POLYDIPSIA [None]
  - WHITE BLOOD CELL COUNT INCREASED [None]
